FAERS Safety Report 4299512-3 (Version None)
Quarter: 2004Q1

REPORT INFORMATION
  Report Type: 
  Country: None (occurrence: None)
  Receive Date: 20040217
  Receipt Date: 20040217
  Transmission Date: 20041129
  Serious: Yes (Other)
  Sender: FDA-Public Use
  Company Number: None

PATIENT
  Age: 34 Year
  Sex: Female
  Weight: 65.7716 kg

DRUGS (2)
  1. INSULIN [Suspect]
     Indication: DIABETES MELLITUS
     Dosage: INSULIN PUMP SQ
     Route: 058
  2. LOTENSIN [Suspect]
     Indication: HYPERTENSION
     Dosage: 40 MG TWICE A DA ORAL
     Route: 048

REACTIONS (1)
  - MEDICATION ERROR [None]
